FAERS Safety Report 6597673-4 (Version None)
Quarter: 2010Q1

REPORT INFORMATION
  Report Type: 
  Country: None (occurrence: None)
  Receive Date: 20100216
  Receipt Date: 20100202
  Transmission Date: 20100710
  Serious: Yes (Other)
  Sender: FDA-Public Use
  Company Number: 230169J10BRA

PATIENT
  Sex: Female

DRUGS (3)
  1. REBIF [Suspect]
     Indication: RELAPSING-REMITTING MULTIPLE SCLEROSIS
     Dosage: 44 MCG, 3 IN 1 WEEKS
     Dates: start: 20060213
  2. ZETRON (BUPROPION HYDROCHLORIDE) [Concomitant]
  3. MACRODANTINE (NITROFURANTOIN) [Concomitant]

REACTIONS (2)
  - CYSTITIS [None]
  - URETHRAL NEOPLASM [None]
